FAERS Safety Report 16031045 (Version 5)
Quarter: 2019Q4

REPORT INFORMATION
  Report Type: Report from Study
  Country: US (occurrence: US)
  Receive Date: 20190304
  Receipt Date: 20191205
  Transmission Date: 20200122
  Serious: Yes (Death, Hospitalization)
  Sender: FDA-Public Use
  Company Number: US-PFIZER INC-2019051217

PATIENT
  Age: 62 Year
  Sex: Female

DRUGS (3)
  1. LETROZOLE. [Concomitant]
     Active Substance: LETROZOLE
     Dosage: UNK
     Dates: start: 201812
  2. IBRANCE [Suspect]
     Active Substance: PALBOCICLIB
     Indication: BREAST CANCER STAGE IV
     Dosage: 75 MG, DAILY(1 PILL BY MOUTH DAILY)  (75MG 21 ON 7 OFF)
     Route: 048
  3. IBRANCE [Suspect]
     Active Substance: PALBOCICLIB
     Indication: BREAST CANCER FEMALE
     Dosage: 125 MG, CYCLIC (DAILY FOR 21 DAYS OF 28 DAY CYCLE)
     Route: 048
     Dates: start: 20190122, end: 2019

REACTIONS (6)
  - Spinal fracture [Unknown]
  - Acute respiratory failure [Fatal]
  - Groin pain [Unknown]
  - Neoplasm progression [Fatal]
  - Nausea [Not Recovered/Not Resolved]
  - White blood cell count decreased [Unknown]

NARRATIVE: CASE EVENT DATE: 2019
